FAERS Safety Report 5396145-2 (Version None)
Quarter: 2007Q3

REPORT INFORMATION
  Report Type: 
  Country: None (occurrence: None)
  Receive Date: 20070725
  Receipt Date: 20070717
  Transmission Date: 20080115
  Serious: Yes (Hospitalization, Other)
  Sender: FDA-Public Use
  Company Number: PHFR2007GB02208

PATIENT
  Sex: Female

DRUGS (7)
  1. TEGRETOL [Suspect]
     Route: 065
  2. MOVICOL [Concomitant]
     Dosage: 2 DF, QD
     Route: 065
  3. VITAMIN CAP [Concomitant]
     Route: 065
  4. NITROFURANTOIN [Concomitant]
     Route: 065
  5. CEPHALEXIN [Concomitant]
     Route: 065
  6. IMIPRAMINE [Concomitant]
     Route: 065
  7. LEVOTHYROXINE SODIUM [Concomitant]
     Route: 065

REACTIONS (2)
  - DRUG LEVEL INCREASED [None]
  - INTESTINAL OBSTRUCTION [None]
